FAERS Safety Report 25188971 (Version 1)
Quarter: 2025Q2

REPORT INFORMATION
  Report Type: Spontaneous
  Country: IT (occurrence: IT)
  Receive Date: 20250411
  Receipt Date: 20250411
  Transmission Date: 20250717
  Serious: Yes (Hospitalization)
  Sender: MYLAN
  Company Number: IT-MYLANLABS-2025M1030895

PATIENT
  Age: 54 Year
  Sex: Male

DRUGS (8)
  1. FONDAPARINUX [Suspect]
     Active Substance: FONDAPARINUX
     Indication: Deep vein thrombosis
  2. FONDAPARINUX [Suspect]
     Active Substance: FONDAPARINUX
     Indication: Pulmonary embolism
     Route: 065
  3. FONDAPARINUX [Suspect]
     Active Substance: FONDAPARINUX
     Route: 065
  4. FONDAPARINUX [Suspect]
     Active Substance: FONDAPARINUX
  5. APIXABAN [Suspect]
     Active Substance: APIXABAN
     Indication: Deep vein thrombosis
  6. APIXABAN [Suspect]
     Active Substance: APIXABAN
     Indication: Pulmonary embolism
     Route: 065
  7. APIXABAN [Suspect]
     Active Substance: APIXABAN
     Route: 065
  8. APIXABAN [Suspect]
     Active Substance: APIXABAN

REACTIONS (1)
  - Drug ineffective [Unknown]
